FAERS Safety Report 23870910 (Version 1)
Quarter: 2024Q2

REPORT INFORMATION
  Report Type: Spontaneous
  Country: FR (occurrence: FR)
  Receive Date: 20240518
  Receipt Date: 20240518
  Transmission Date: 20240716
  Serious: Yes (Other)
  Sender: FDA-Public Use
  Company Number: FR-MACLEODS PHARMA-MAC2024047262

PATIENT
  Age: 50 Year
  Sex: Male

DRUGS (2)
  1. MONTELUKAST [Suspect]
     Active Substance: MONTELUKAST SODIUM
     Indication: Asthma
     Route: 065
  2. BETAMETHASONE [Concomitant]
     Active Substance: BETAMETHASONE\BETAMETHASONE DIPROPIONATE
     Indication: Asthma
     Dosage: 10-DAY COURSE
     Route: 065

REACTIONS (8)
  - Eosinophilic granulomatosis with polyangiitis [Recovered/Resolved]
  - Acute pulmonary oedema [Recovered/Resolved]
  - Ventricular hypokinesia [Recovered/Resolved]
  - Cardiac failure congestive [Recovered/Resolved]
  - Hemianopia homonymous [Recovered/Resolved]
  - Ischaemic stroke [Recovered/Resolved]
  - Anosognosia [Recovered/Resolved]
  - Confusional state [Recovered/Resolved]
